FAERS Safety Report 23516629 (Version 1)
Quarter: 2024Q1

REPORT INFORMATION
  Report Type: Spontaneous
  Country: US (occurrence: US)
  Receive Date: 20240213
  Receipt Date: 20240213
  Transmission Date: 20240410
  Serious: No
  Sender: FDA-Public Use
  Company Number: US-UCBSA-2023060251

PATIENT
  Age: 24 Year
  Sex: Male

DRUGS (1)
  1. BIMZELX [Suspect]
     Active Substance: BIMEKIZUMAB-BKZX
     Indication: Psoriasis
     Dosage: INJECT 320MG (2 PENS) SUBCUTANEOUSLY AT WEEK 0, 4, 8, 12, AND 16
     Route: 058
     Dates: start: 202311

REACTIONS (2)
  - Fatigue [Recovered/Resolved]
  - Tenderness [Not Recovered/Not Resolved]

NARRATIVE: CASE EVENT DATE: 20231201
